FAERS Safety Report 6579066-9 (Version None)
Quarter: 2010Q1

REPORT INFORMATION
  Report Type: 
  Country: None (occurrence: None)
  Receive Date: 20100212
  Receipt Date: 20100209
  Transmission Date: 20100710
  Serious: Yes (Death)
  Sender: FDA-Public Use
  Company Number: PHHY2010CA05601

PATIENT
  Sex: Male

DRUGS (2)
  1. CLOZARIL [Suspect]
     Indication: SCHIZOPHRENIA
     Dosage: 100 MG AM AND 325 MG HS
     Route: 048
     Dates: start: 19991126
  2. DIRALPNOEX SODIUM [Concomitant]
     Dosage: 500 MG, BID

REACTIONS (1)
  - DEATH [None]
